FAERS Safety Report 9563237 (Version 2)
Quarter: 2013Q3

REPORT INFORMATION
  Report Type: Spontaneous
  Country: US (occurrence: US)
  Receive Date: 20130927
  Receipt Date: 20130927
  Transmission Date: 20140515
  Serious: Yes (Hospitalization, Disabling, Other)
  Sender: FDA-Public Use
  Company Number: US-009507513-1012USA01310

PATIENT
  Sex: Female
  Weight: 52.16 kg

DRUGS (6)
  1. FOSAMAX [Suspect]
     Indication: OSTEOPOROSIS
     Dosage: 70 MG, QW
     Route: 048
     Dates: start: 20021004, end: 200510
  2. FOSAMAX [Suspect]
     Indication: HYSTERECTOMY
  3. SIMVASTATIN [Concomitant]
     Indication: BLOOD CHOLESTEROL INCREASED
     Route: 048
     Dates: start: 2000
  4. FOSAMAX PLUS D [Suspect]
     Indication: OSTEOPOROSIS
     Dosage: 70/2800
     Route: 048
     Dates: start: 200510, end: 20060609
  5. FOSAMAX PLUS D [Suspect]
     Indication: HYSTERECTOMY
  6. ACTONEL WITH CALCIUM [Suspect]
     Dosage: UNK MG, UNK
     Route: 048
     Dates: start: 20060528, end: 20070618

REACTIONS (65)
  - Femur fracture [Unknown]
  - Intramedullary rod insertion [Unknown]
  - Femur fracture [Unknown]
  - Intramedullary rod insertion [Unknown]
  - Hip fracture [Unknown]
  - Spondylolisthesis [Unknown]
  - Lumbar vertebral fracture [Unknown]
  - Breast cancer [Unknown]
  - Liver function test abnormal [Unknown]
  - Spinal operation [Unknown]
  - Spinal osteoarthritis [Unknown]
  - Anaemia postoperative [Unknown]
  - Rectal haemorrhage [Unknown]
  - Fall [Unknown]
  - Back disorder [Unknown]
  - Oxygen saturation decreased [Unknown]
  - Fat embolism [Unknown]
  - Eyelid ptosis [Unknown]
  - Low turnover osteopathy [Unknown]
  - Breast mass [Unknown]
  - Liver function test abnormal [Unknown]
  - Glaucoma [Unknown]
  - Adverse drug reaction [Unknown]
  - Osteoarthritis [Unknown]
  - Gait disturbance [Unknown]
  - Dental caries [Unknown]
  - Tooth disorder [Unknown]
  - Benign neoplasm of adrenal gland [Unknown]
  - Periodontitis [Unknown]
  - Tooth disorder [Unknown]
  - Coagulation factor deficiency [Unknown]
  - Haemorrhoids [Not Recovered/Not Resolved]
  - Cholelithiasis [Unknown]
  - Cough [Unknown]
  - Myopathy [Unknown]
  - Dermatomyositis [Unknown]
  - Retinal disorder [Unknown]
  - Rubber sensitivity [Unknown]
  - Insomnia [Not Recovered/Not Resolved]
  - Thyroid function test abnormal [Unknown]
  - Antinuclear antibody increased [Unknown]
  - Depression [Unknown]
  - Macular fibrosis [Unknown]
  - Cataract [Unknown]
  - Essential hypertension [Unknown]
  - Pharyngitis [Unknown]
  - Palpitations [Unknown]
  - Demyelinating polyneuropathy [Unknown]
  - Osteoarthritis [Unknown]
  - Spinal osteoarthritis [Unknown]
  - Cholecystitis acute [Unknown]
  - Fall [Unknown]
  - Hypertension [Unknown]
  - Bone disorder [Unknown]
  - Pleural effusion [Unknown]
  - Urticaria [Unknown]
  - Gastrooesophageal reflux disease [Unknown]
  - Headache [Unknown]
  - Vertigo [Unknown]
  - Drug hypersensitivity [Unknown]
  - Drug hypersensitivity [Unknown]
  - Back pain [Unknown]
  - Back pain [Unknown]
  - Dizziness [Not Recovered/Not Resolved]
  - Off label use [Unknown]
